FAERS Safety Report 17199909 (Version 1)
Quarter: 2019Q4

REPORT INFORMATION
  Report Type: Spontaneous
  Country: CA (occurrence: CA)
  Receive Date: 20191226
  Receipt Date: 20191226
  Transmission Date: 20200122
  Serious: Yes (Other)
  Sender: FDA-Public Use
  Company Number: CA-TEVA-2019-CA-1156747

PATIENT
  Age: 66 Year
  Sex: Male

DRUGS (3)
  1. CANNABIS SATIVA [Concomitant]
     Active Substance: CANNABIS SATIVA FLOWERING TOP
  2. PREGABALIN. [Suspect]
     Active Substance: PREGABALIN
     Indication: PRODUCT USED FOR UNKNOWN INDICATION
     Route: 065
  3. FLURBIPROFEN. [Concomitant]
     Active Substance: FLURBIPROFEN

REACTIONS (2)
  - Carpal tunnel syndrome [Unknown]
  - Pain [Unknown]
